FAERS Safety Report 7970080-5 (Version None)
Quarter: 2011Q4

REPORT INFORMATION
  Report Type: 
  Country: None (occurrence: None)
  Receive Date: 20111122
  Receipt Date: 20110802
  Transmission Date: 20120403
  Serious: No
  Sender: FDA-Public Use
  Company Number: PHHY2011US57190

PATIENT
  Age: 50 Year
  Sex: Female
  Weight: 59 kg

DRUGS (1)
  1. GILENYA [Suspect]
     Indication: MULTIPLE SCLEROSIS
     Dosage: 0.5 MG, QD, ORAL
     Route: 048
     Dates: start: 20110616, end: 20110715

REACTIONS (8)
  - PALPITATIONS [None]
  - BLOOD PRESSURE DECREASED [None]
  - FATIGUE [None]
  - DYSPEPSIA [None]
  - DIZZINESS [None]
  - CHEST PAIN [None]
  - MOUTH ULCERATION [None]
  - LIP BLISTER [None]
